FAERS Safety Report 8269768 (Version 2)
Quarter: 2012Q4

REPORT INFORMATION
  Report Type: 
  Country: US (occurrence: US)
  Receive Date: 20111130
  Receipt Date: 20121106
  Transmission Date: 20130627
  Serious: Yes (Other)
  Sender: FDA-Public Use
  Company Number: US-ROCHE-792724

PATIENT
  Age: 15 Year
  Sex: Male
  Weight: 79.45 kg

DRUGS (1)
  1. ACCUTANE [Suspect]
     Indication: ACNE
     Route: 065
     Dates: start: 19990901, end: 20000630

REACTIONS (8)
  - Inflammatory bowel disease [Unknown]
  - Colitis ulcerative [Unknown]
  - Crohn^s disease [Unknown]
  - Depression [Unknown]
  - Suicidal ideation [Unknown]
  - Irritable bowel syndrome [Unknown]
  - Xerosis [Unknown]
  - Back pain [Unknown]
